FAERS Safety Report 23278259 (Version 1)
Quarter: 2023Q4

REPORT INFORMATION
  Report Type: Spontaneous
  Country: US (occurrence: None)
  Receive Date: 20231207
  Receipt Date: 20231207
  Transmission Date: 20240109
  Serious: Yes (Hospitalization, Other)
  Sender: FDA-Public Use
  Company Number: None

PATIENT
  Age: 67 Year
  Sex: Female
  Weight: 115 kg

DRUGS (1)
  1. PRALUENT [Suspect]
     Active Substance: ALIROCUMAB
     Indication: Arteriosclerosis
     Dosage: FREQUENCY : EVERY OTHER WEEK;?
     Route: 058
     Dates: start: 20231012, end: 20231201

REACTIONS (8)
  - Vomiting [None]
  - Lethargy [None]
  - Nausea [None]
  - Chest pain [None]
  - Dyspnoea [None]
  - Fatigue [None]
  - Dizziness [None]
  - Myocardial infarction [None]

NARRATIVE: CASE EVENT DATE: 20231201
